FAERS Safety Report 7004201-8 (Version None)
Quarter: 2010Q3

REPORT INFORMATION
  Report Type: 
  Country: None (occurrence: None)
  Receive Date: 20100920
  Receipt Date: 20100224
  Transmission Date: 20110219
  Serious: No
  Sender: FDA-Public Use
  Company Number: US-WYE-H13876210

PATIENT
  Sex: Female
  Weight: 83.99 kg

DRUGS (7)
  1. PRISTIQ [Suspect]
     Indication: DEPRESSION
     Route: 048
     Dates: start: 20100122
  2. BETAPACE [Concomitant]
  3. ZESTRIL [Concomitant]
  4. CYTOMEL [Concomitant]
  5. HYDROCHLOROTHIAZIDE [Concomitant]
  6. COUMADIN [Concomitant]
  7. SYNTHROID [Concomitant]

REACTIONS (8)
  - ABDOMINAL DISTENSION [None]
  - ABDOMINAL PAIN [None]
  - ABDOMINAL PAIN UPPER [None]
  - ANORECTAL DISCOMFORT [None]
  - DIARRHOEA [None]
  - FLATULENCE [None]
  - HAEMORRHAGE [None]
  - HYPERCHLORHYDRIA [None]
